FAERS Safety Report 10025800 (Version 1)
Quarter: 2014Q1

REPORT INFORMATION
  Report Type: Spontaneous
  Country: DE (occurrence: DE)
  Receive Date: 20140320
  Receipt Date: 20140320
  Transmission Date: 20141002
  Serious: Yes (Congenital Anomaly, Other)
  Sender: FDA-Public Use
  Company Number: DE-TEVA-468023GER

PATIENT
  Age: 1 Day
  Sex: Male

DRUGS (5)
  1. SERTRALINE [Suspect]
     Route: 064
  2. OPIPRAMOL [Suspect]
     Route: 064
  3. ZOPICLONE [Suspect]
     Route: 064
  4. CENTRUM MATERNA [Concomitant]
     Route: 064
  5. NASENTROPFEN K - RATIOPHARM [Concomitant]
     Route: 064

REACTIONS (2)
  - Neonatal respiratory distress syndrome [Recovered/Resolved]
  - Kidney duplex [Not Recovered/Not Resolved]
